FAERS Safety Report 4358640-4 (Version None)
Quarter: 2004Q2

REPORT INFORMATION
  Report Type: 
  Country: None (occurrence: None)
  Receive Date: 20040513
  Receipt Date: 20040513
  Transmission Date: 20050107
  Serious: Yes (Hospitalization)
  Sender: FDA-Public Use
  Company Number: None

PATIENT
  Sex: Male

DRUGS (1)
  1. CELECOXIB [Suspect]
     Indication: PANCREATIC CARCINOMA
     Dosage: 400 MG BID PO
     Route: 048

REACTIONS (2)
  - PANCREATIC CYST [None]
  - TRANSAMINASES INCREASED [None]
